FAERS Safety Report 14323904 (Version 1)
Quarter: 2017Q4

REPORT INFORMATION
  Report Type: Spontaneous
  Country: FR (occurrence: FR)
  Receive Date: 20171226
  Receipt Date: 20171226
  Transmission Date: 20180321
  Serious: Yes (Other)
  Sender: FDA-Public Use
  Company Number: PHHY2017FR191779

PATIENT
  Age: 70 Year
  Sex: Male

DRUGS (9)
  1. TACROLIMUS. [Suspect]
     Active Substance: TACROLIMUS
     Dosage: 8 MG, UNK
     Route: 048
     Dates: start: 20161125
  2. TACROLIMUS. [Suspect]
     Active Substance: TACROLIMUS
     Dosage: 7 MG, UNK
     Route: 048
     Dates: start: 20170127
  3. TACROLIMUS. [Suspect]
     Active Substance: TACROLIMUS
     Dosage: 9 MG, UNK
     Route: 048
     Dates: start: 20161110
  4. CELLCEPT [Concomitant]
     Active Substance: MYCOPHENOLATE MOFETIL\MYCOPHENOLATE MOFETIL HYDROCHLORIDE
     Indication: IMMUNOSUPPRESSION
     Dosage: 1000 (UNIT NOT PROVIDED), ONCE DAILY
     Route: 065
     Dates: start: 20161020
  5. SOLUPRED [Concomitant]
     Active Substance: PREDNISOLONE
     Dosage: 2.5 (UNIT NOR PROVIDED), ONCE DAILY
     Route: 065
     Dates: start: 20170623, end: 20171018
  6. SOLUPRED [Concomitant]
     Active Substance: PREDNISOLONE
     Dosage: 5 (UNIT NOR PROVIDED), ONCE DAILY
     Route: 065
     Dates: start: 20170503, end: 20170622
  7. TACROLIMUS. [Suspect]
     Active Substance: TACROLIMUS
     Dosage: 8 MG, UNK
     Route: 048
     Dates: start: 20171019
  8. SOLUPRED [Concomitant]
     Active Substance: PREDNISOLONE
     Indication: IMMUNOSUPPRESSION
     Dosage: 10 (UNIT NOR PROVIDED), ONCE DAILY
     Route: 065
     Dates: start: 20161027, end: 20170502
  9. TACROLIMUS. [Suspect]
     Active Substance: TACROLIMUS
     Indication: PRODUCT USED FOR UNKNOWN INDICATION
     Dosage: 10 MG, UNK
     Route: 048
     Dates: start: 20161027

REACTIONS (1)
  - Urinary tract infection enterococcal [Recovered/Resolved]

NARRATIVE: CASE EVENT DATE: 20161213
